FAERS Safety Report 8880068 (Version 2)
Quarter: 2012Q4

REPORT INFORMATION
  Report Type: 
  Country: US (occurrence: US)
  Receive Date: 20121031
  Receipt Date: 20121214
  Transmission Date: 20130627
  Serious: Yes (Other)
  Sender: FDA-Public Use
  Company Number: US-BAYER-2012-112776

PATIENT
  Age: 77 Year
  Sex: Male
  Weight: 94.7 kg

DRUGS (3)
  1. XARELTO [Suspect]
     Indication: VENOUS THROMBOEMBOLISM PROPHYLAXIS
     Dosage: 10 mg, QD
     Route: 048
     Dates: start: 20121011, end: 20121014
  2. XARELTO [Interacting]
     Indication: TOTAL KNEE REPLACEMENT
  3. ACETYLSALICYLIC ACID({=100 MG) [Interacting]
     Indication: PRODUCT USED FOR UNKNOWN INDICATION
     Dosage: 81 mg, QD

REACTIONS (1)
  - Haemarthrosis [Recovered/Resolved]
